FAERS Safety Report 8398206-2 (Version None)
Quarter: 2012Q2

REPORT INFORMATION
  Report Type: 
  Country: None (occurrence: None)
  Receive Date: 20120531
  Receipt Date: 20120524
  Transmission Date: 20120825
  Serious: Yes (Hospitalization, Other)
  Sender: FDA-Public Use
  Company Number: PHHY2012BR044913

PATIENT
  Sex: Female
  Weight: 75 kg

DRUGS (8)
  1. ROSUVASTATIN [Concomitant]
     Indication: BLOOD TRIGLYCERIDES ABNORMAL
  2. GLIMEPIRIDE [Concomitant]
     Indication: ASTHMA
  3. SPIRONOLACTONE [Concomitant]
  4. FUROSEMIDE [Concomitant]
  5. METFORMIN HCL [Concomitant]
     Indication: DIABETES MELLITUS
  6. ONBREZ [Suspect]
     Indication: ASTHMA
     Dosage: 300 UG, BID
  7. JANUMET [Concomitant]
     Indication: DIABETES MELLITUS
     Dosage: 1 DF, BID
  8. FORMOTEROL FUMARATE [Concomitant]
     Indication: ASTHMA
     Dosage: UNK UKN, 3 INHALATIONS DAILY, FOR 6 YEARS AGO

REACTIONS (5)
  - SWELLING [None]
  - DYSPNOEA [None]
  - COUGH [None]
  - INAPPROPRIATE SCHEDULE OF DRUG ADMINISTRATION [None]
  - FLUID RETENTION [None]
